FAERS Safety Report 5498579-4 (Version None)
Quarter: 2007Q4

REPORT INFORMATION
  Report Type: 
  Country: None (occurrence: None)
  Receive Date: 20071024
  Receipt Date: 20071024
  Transmission Date: 20080405
  Serious: Yes (Life-Threatening, Hospitalization)
  Sender: FDA-Public Use
  Company Number: None

PATIENT
  Age: 56 Year
  Sex: Female
  Weight: 49.9 kg

DRUGS (1)
  1. BEVACIZUMAB     GENENTECH [Suspect]
     Indication: MESOTHELIOMA MALIGNANT
     Dosage: 15 MG/KG   EVERY 21 DAYS  IV
     Route: 042
     Dates: start: 20070907, end: 20071019

REACTIONS (1)
  - PULMONARY EMBOLISM [None]
